FAERS Safety Report 5643903-2 (Version None)
Quarter: 2008Q1

REPORT INFORMATION
  Report Type: 
  Country: None (occurrence: None)
  Receive Date: 20080226
  Receipt Date: 20080215
  Transmission Date: 20080703
  Serious: Yes (Hospitalization)
  Sender: FDA-Public Use
  Company Number: OPER20080028

PATIENT
  Age: 84 Year
  Sex: Female
  Weight: 72.5755 kg

DRUGS (1)
  1. OPANA ER [Suspect]
     Indication: BACK PAIN
     Dosage: 1 TABLET GAM, PER ORAL
     Route: 048
     Dates: start: 20080101, end: 20080101

REACTIONS (2)
  - DIPLEGIA [None]
  - HYPERSENSITIVITY [None]
